FAERS Safety Report 7617568-4 (Version None)
Quarter: 2011Q3

REPORT INFORMATION
  Report Type: 
  Country: None (occurrence: None)
  Receive Date: 20110718
  Receipt Date: 20110705
  Transmission Date: 20111222
  Serious: Yes (Other)
  Sender: FDA-Public Use
  Company Number: CA-JNJFOC-20110703540

PATIENT

DRUGS (11)
  1. REMICADE [Suspect]
     Indication: MATERNAL EXPOSURE DURING PREGNANCY
  2. STRESSTABS [Concomitant]
     Dates: start: 20101008, end: 20110503
  3. CELEXA [Concomitant]
     Dates: start: 20090101
  4. HYDROCORTISONE [Concomitant]
     Indication: PREMEDICATION
  5. DICLECTIN [Concomitant]
  6. PREDNISONE [Concomitant]
     Indication: PREMEDICATION
  7. CALCIUM CARBONATE [Concomitant]
     Dates: start: 20101008, end: 20110503
  8. FOLIC ACID [Concomitant]
     Dates: start: 20100415, end: 20110503
  9. PREGVIT [Concomitant]
     Dates: start: 20101008, end: 20110503
  10. BENADRYL [Concomitant]
     Indication: PREMEDICATION
  11. ACETAMINOPHEN [Concomitant]
     Indication: PREMEDICATION

REACTIONS (1)
  - PREMATURE BABY [None]
